FAERS Safety Report 4369212-X (Version None)
Quarter: 2004Q2

REPORT INFORMATION
  Report Type: 
  Country: None (occurrence: None)
  Receive Date: 20040601
  Receipt Date: 20040601
  Transmission Date: 20050107
  Serious: Yes (Other)
  Sender: FDA-Public Use
  Company Number: None

PATIENT
  Sex: Female
  Weight: 81.6475 kg

DRUGS (2)
  1. RITUXIMAB 1 GM IV X 2 DOSES [Suspect]
     Indication: SYSTEMIC LUPUS ERYTHEMATOSUS
     Dosage: 1 GM IV Q 2WKS X 2 DOSES
     Route: 042
     Dates: start: 20030901
  2. PREDNISONE [Concomitant]

REACTIONS (5)
  - CAESAREAN SECTION [None]
  - CONDITION AGGRAVATED [None]
  - DRUG EXPOSURE DURING PREGNANCY [None]
  - PREGNANCY [None]
  - SYSTEMIC LUPUS ERYTHEMATOSUS [None]
